FAERS Safety Report 5350998-2 (Version None)
Quarter: 2007Q2

REPORT INFORMATION
  Report Type: 
  Country: None (occurrence: None)
  Receive Date: 20070606
  Receipt Date: 20070529
  Transmission Date: 20071010
  Serious: Yes (Other)
  Sender: FDA-Public Use
  Company Number: 2007SP010374

PATIENT
  Sex: Female

DRUGS (7)
  1. PEG-INTRON [Suspect]
     Indication: HEPATITIS B
     Dosage: 150 MCG; SC
     Route: 058
     Dates: start: 20060707, end: 20070201
  2. PEG-INTRON [Suspect]
     Indication: HEPATITIS C
     Dosage: 150 MCG; SC
     Route: 058
     Dates: start: 20060707, end: 20070201
  3. RIBAVIRIN [Suspect]
     Indication: HEPATITIS B
     Dosage: PO
     Route: 048
     Dates: start: 20060707, end: 20070201
  4. RIBAVIRIN [Suspect]
     Indication: HEPATITIS C
     Dosage: PO
     Route: 048
     Dates: start: 20060707, end: 20070201
  5. GLIPIZIDE [Concomitant]
  6. METFORMIN HYDROCHLORIDE [Concomitant]
  7. PREVACID [Concomitant]

REACTIONS (5)
  - ALOPECIA [None]
  - BASEDOW'S DISEASE [None]
  - DIARRHOEA [None]
  - PSORIASIS [None]
  - VOMITING [None]
